FAERS Safety Report 8046541-X (Version None)
Quarter: 2012Q1

REPORT INFORMATION
  Report Type: 
  Country: None (occurrence: None)
  Receive Date: 20120113
  Receipt Date: 20120111
  Transmission Date: 20120608
  Serious: Yes (Other)
  Sender: FDA-Public Use
  Company Number: US-MERCK-1106USA02914

PATIENT
  Age: 60 Year
  Sex: Female
  Weight: 64 kg

DRUGS (2)
  1. FOSAMAX [Suspect]
     Indication: OSTEOPOROSIS
     Route: 048
     Dates: start: 19950101
  2. FOSAMAX [Suspect]
     Route: 048
     Dates: start: 20010501

REACTIONS (22)
  - ARTHROPATHY [None]
  - CHRONIC OBSTRUCTIVE PULMONARY DISEASE [None]
  - DEPRESSION [None]
  - CYSTITIS [None]
  - THYROID DISORDER [None]
  - FAECAL INCONTINENCE [None]
  - ABDOMINAL PAIN [None]
  - SINUS DISORDER [None]
  - DYSPEPSIA [None]
  - BLADDER DISORDER [None]
  - PAIN IN EXTREMITY [None]
  - OSTEOARTHRITIS [None]
  - OSTEONECROSIS OF JAW [None]
  - ANXIETY [None]
  - UPPER RESPIRATORY TRACT INFECTION [None]
  - MIXED INCONTINENCE [None]
  - BACK INJURY [None]
  - BACK PAIN [None]
  - ULCER [None]
  - CHEST PAIN [None]
  - JAW DISORDER [None]
  - BONE LOSS [None]
